FAERS Safety Report 23426674 (Version 1)
Quarter: 2024Q1

REPORT INFORMATION
  Report Type: Spontaneous
  Country: FR (occurrence: FR)
  Receive Date: 20240122
  Receipt Date: 20240122
  Transmission Date: 20240409
  Serious: Yes (Hospitalization)
  Sender: FDA-Public Use
  Company Number: None

PATIENT
  Age: 22 Year
  Weight: 54.7 kg

DRUGS (2)
  1. METHOTREXATE [Suspect]
     Active Substance: METHOTREXATE
     Indication: Lymphocytic leukaemia
     Dosage: SEE COMMENT
     Route: 042
     Dates: start: 20230812, end: 20231018
  2. CYTARABINE [Suspect]
     Active Substance: CYTARABINE
     Indication: Lymphocytic leukaemia
     Dosage: SEE COMMENT
     Route: 042
     Dates: start: 20230713, end: 20231018

REACTIONS (2)
  - Rash [Recovering/Resolving]
  - Segmented hyalinising vasculitis [Recovering/Resolving]

NARRATIVE: CASE EVENT DATE: 20231024
